FAERS Safety Report 6010556-3 (Version None)
Quarter: 2008Q4

REPORT INFORMATION
  Report Type: 
  Country: None (occurrence: None)
  Receive Date: 20081217
  Receipt Date: 20081217
  Transmission Date: 20090506
  Serious: Yes (Life-Threatening, Hospitalization, Disabling)
  Sender: FDA-Public Use
  Company Number: None

PATIENT
  Weight: 59.8748 kg

DRUGS (2)
  1. VARENICLINE THERAPY, PFIZER, INC. [Suspect]
     Indication: SMOKING CESSATION THERAPY
     Dosage: PER PKG INSTRUCT. 1 X DAY ORAL
     Route: 048
     Dates: start: 20071101, end: 20080301
  2. GASEOUS SUBSTANCE ^POPPERS^ [Suspect]
     Indication: SELF-MEDICATION
     Dosage: 4-5X/VISIT BATHROOM AIR DUCTS STRONG SMELL
     Dates: start: 20080301

REACTIONS (15)
  - ABNORMAL BEHAVIOUR [None]
  - AGGRESSION [None]
  - DISTURBANCE IN ATTENTION [None]
  - EMOTIONAL DISORDER [None]
  - EXAGGERATED STARTLE RESPONSE [None]
  - FEAR [None]
  - FEELING ABNORMAL [None]
  - HOMELESS [None]
  - IMPRISONMENT [None]
  - INSOMNIA [None]
  - RASH PRURITIC [None]
  - RESTLESSNESS [None]
  - SELF-INJURIOUS IDEATION [None]
  - SOCIAL AVOIDANT BEHAVIOUR [None]
  - TINEA INFECTION [None]
